FAERS Safety Report 10974247 (Version 2)
Quarter: 2015Q2

REPORT INFORMATION
  Report Type: Spontaneous
  Country: IT (occurrence: IT)
  Receive Date: 20150401
  Receipt Date: 20150508
  Transmission Date: 20150821
  Serious: Yes (Other)
  Sender: FDA-Public Use
  Company Number: IT-SA-2015SA039654

PATIENT
  Age: 68 Year
  Sex: Male

DRUGS (2)
  1. PYRAZINAMIDE/RIFAMPICIN/ISONIAZID [Suspect]
     Active Substance: ISONIAZID\PYRAZINAMIDE\RIFAMPIN
     Indication: TUBERCULOSIS
     Dosage: 6 TABLTS, ALL TAKEN TOGETHER ONCE
     Route: 065
  2. INFLIXIMAB [Concomitant]
     Active Substance: INFLIXIMAB
     Indication: CROHN^S DISEASE

REACTIONS (11)
  - Red blood cell sedimentation rate increased [Recovering/Resolving]
  - Rash pruritic [Recovering/Resolving]
  - Rash erythematous [Recovering/Resolving]
  - Leukocytosis [Recovering/Resolving]
  - Erythema [Recovering/Resolving]
  - Skin oedema [Recovering/Resolving]
  - Skin exfoliation [Recovering/Resolving]
  - Rash pustular [Recovering/Resolving]
  - Skin lesion [Recovering/Resolving]
  - Acute generalised exanthematous pustulosis [Recovering/Resolving]
  - Pyrexia [Recovering/Resolving]
